FAERS Safety Report 17773938 (Version 4)
Quarter: 2020Q3

REPORT INFORMATION
  Report Type: Report from Study
  Country: US (occurrence: US)
  Receive Date: 20200513
  Receipt Date: 20200908
  Transmission Date: 20201102
  Serious: No
  Sender: FDA-Public Use
  Company Number: NVSC2020US129167

PATIENT
  Sex: Female

DRUGS (4)
  1. PIQRAY [Suspect]
     Active Substance: ALPELISIB
     Route: 048
  2. PIQRAY [Suspect]
     Active Substance: ALPELISIB
     Route: 048
  3. PIQRAY [Suspect]
     Active Substance: ALPELISIB
     Indication: PRODUCT USED FOR UNKNOWN INDICATION
     Dosage: UNK
     Route: 048
  4. PIQRAY [Suspect]
     Active Substance: ALPELISIB
     Route: 048

REACTIONS (11)
  - Body temperature increased [Unknown]
  - Fall [Unknown]
  - Diarrhoea [Unknown]
  - Depression [Unknown]
  - Rash [Unknown]
  - Nausea [Recovering/Resolving]
  - Crying [Unknown]
  - Chills [Unknown]
  - Pain [Unknown]
  - Taste disorder [Unknown]
  - Face injury [Unknown]
